FAERS Safety Report 7668668-4 (Version None)
Quarter: 2011Q3

REPORT INFORMATION
  Report Type: 
  Country: None (occurrence: None)
  Receive Date: 20110808
  Receipt Date: 20110729
  Transmission Date: 20111222
  Serious: Yes (Other)
  Sender: FDA-Public Use
  Company Number: JP-PFIZER INC-2011178710

PATIENT
  Age: 51 Year
  Sex: Male

DRUGS (2)
  1. ZOSYN [Suspect]
     Indication: SKIN INFECTION
     Dosage: 9 G, UNK
     Route: 042
     Dates: start: 20110621, end: 20110713
  2. VEEN D [Concomitant]
     Dosage: 500 ML, UNK
     Route: 042
     Dates: start: 20110704, end: 20110704

REACTIONS (3)
  - LIVER DISORDER [None]
  - ANGIOPATHY [None]
  - ARTHRALGIA [None]
